FAERS Safety Report 5854120-5 (Version None)
Quarter: 2008Q3

REPORT INFORMATION
  Report Type: 
  Country: None (occurrence: None)
  Receive Date: 20080822
  Receipt Date: 20080815
  Transmission Date: 20090109
  Serious: Yes (Other)
  Sender: FDA-Public Use
  Company Number: US-ASTRAZENECA-2008UW16741

PATIENT
  Age: 48 Year
  Sex: Female
  Weight: 81.6 kg

DRUGS (2)
  1. SEROQUEL XR [Suspect]
     Indication: BIPOLAR DISORDER
     Dosage: 600 MG
     Route: 048
     Dates: start: 20040101
  2. VALPROIC ACID [Concomitant]

REACTIONS (2)
  - CHEST PAIN [None]
  - WEIGHT INCREASED [None]
